FAERS Safety Report 5690885-3 (Version None)
Quarter: 2008Q2

REPORT INFORMATION
  Report Type: 
  Country: None (occurrence: None)
  Receive Date: 20080401
  Receipt Date: 20080319
  Transmission Date: 20081010
  Serious: Yes (Hospitalization)
  Sender: FDA-Public Use
  Company Number: PHBS2007JP20677

PATIENT
  Age: 60 Year
  Sex: Female
  Weight: 50 kg

DRUGS (10)
  1. ZOMETA [Suspect]
     Indication: METASTASES TO CENTRAL NERVOUS SYSTEM
     Dosage: 4 MG
     Route: 042
     Dates: start: 20071204, end: 20071204
  2. LAC B [Concomitant]
     Indication: SCHIZOPHRENIA
     Dosage: 3 DF
     Route: 048
  3. MARZULENE S [Concomitant]
     Indication: SCHIZOPHRENIA
     Dosage: 100 DF
     Route: 048
  4. AM [Concomitant]
     Indication: SCHIZOPHRENIA
     Dosage: 1.3 G
     Route: 048
  5. DOGMATYL [Concomitant]
     Indication: SCHIZOPHRENIA
     Dosage: 400 DF
     Route: 048
  6. DEPAS [Concomitant]
     Indication: SCHIZOPHRENIA
     Dosage: 1.0 DF
     Route: 048
  7. PARKINES [Concomitant]
     Indication: SCHIZOPHRENIA
     Dosage: 4 DF
     Route: 048
  8. LEVOTOMIN [Concomitant]
     Indication: SCHIZOPHRENIA
     Dosage: 25 DF
     Route: 048
  9. LENDORMIN [Concomitant]
     Indication: SCHIZOPHRENIA
     Dosage: 0.25 DF
     Route: 048
  10. ROHYPNOL [Concomitant]
     Indication: SCHIZOPHRENIA
     Dosage: 2 DF
     Route: 048

REACTIONS (4)
  - DECREASED APPETITE [None]
  - METASTASES TO CENTRAL NERVOUS SYSTEM [None]
  - PYREXIA [None]
  - URINARY INCONTINENCE [None]
